FAERS Safety Report 22978600 (Version 5)
Quarter: 2024Q1

REPORT INFORMATION
  Report Type: Spontaneous
  Country: CA (occurrence: CA)
  Receive Date: 20230925
  Receipt Date: 20240227
  Transmission Date: 20240409
  Serious: Yes (Other)
  Sender: FDA-Public Use
  Company Number: CA-PFIZER INC-202300305750

PATIENT
  Age: 34 Year
  Sex: Female

DRUGS (1)
  1. ABRILADA [Suspect]
     Active Substance: ADALIMUMAB-AFZB
     Indication: Hidradenitis
     Dosage: 1 DF,W0 160MG (PREFILLED SYRINGE);W2 80MG; 40MG EOW FROM W4-PREFILLED PEN
     Route: 058
     Dates: start: 20230622

REACTIONS (4)
  - Sinus operation [Recovered/Resolved]
  - Pain [Unknown]
  - Fatigue [Unknown]
  - Postoperative wound infection [Unknown]

NARRATIVE: CASE EVENT DATE: 20230101
